FAERS Safety Report 10892581 (Version 2)
Quarter: 2015Q1

REPORT INFORMATION
  Report Type: Report from Study
  Country: BR (occurrence: BR)
  Receive Date: 20150306
  Receipt Date: 20150310
  Transmission Date: 20150721
  Serious: Yes (Death, Other)
  Sender: FDA-Public Use
  Company Number: PHHY2015BR027163

PATIENT
  Age: 76 Year
  Sex: Male
  Weight: 70 kg

DRUGS (1)
  1. EXELON PATCH [Suspect]
     Active Substance: RIVASTIGMINE
     Indication: MEMORY IMPAIRMENT
     Dosage: 1 DF, QD
     Route: 062
     Dates: start: 20140927, end: 20141027

REACTIONS (3)
  - Lung disorder [Not Recovered/Not Resolved]
  - Respiratory failure [Fatal]
  - Product use issue [Unknown]
